FAERS Safety Report 6890780-8 (Version None)
Quarter: 2010Q3

REPORT INFORMATION
  Report Type: 
  Country: None (occurrence: None)
  Receive Date: 20100731
  Receipt Date: 20090319
  Transmission Date: 20110219
  Serious: No
  Sender: FDA-Public Use
  Company Number: US-PFIZER INC-2009153870

PATIENT
  Age: 48 Year
  Sex: Male

DRUGS (6)
  1. LIPITOR [Suspect]
     Indication: BLOOD CHOLESTEROL ABNORMAL
     Dosage: 40 MG, 1X/DAY
     Dates: start: 20081206
  2. LOVAZA [Concomitant]
     Dosage: 2 G, 2X/DAY
  3. PLAVIX [Concomitant]
     Dosage: 75 MG, 1X/DAY
  4. METOPROLOL [Concomitant]
     Dosage: 25 MG, 2X/DAY
  5. LISINOPRIL [Concomitant]
     Dosage: 10 MG, 1X/DAY
  6. NITROGLYCERIN [Concomitant]
     Dosage: UNK

REACTIONS (1)
  - MUSCLE SPASMS [None]
